FAERS Safety Report 12098546 (Version 4)
Quarter: 2021Q3

REPORT INFORMATION
  Report Type: Spontaneous
  Country: FR (occurrence: FR)
  Receive Date: 20160222
  Receipt Date: 20210816
  Transmission Date: 20211014
  Serious: Yes (Hospitalization, Other)
  Sender: FDA-Public Use
  Company Number: FR-AUROBINDO-AUR-APL-2016-01821

PATIENT
  Age: 26 Year
  Sex: Male

DRUGS (4)
  1. LACOSAMIDE. [Suspect]
     Active Substance: LACOSAMIDE
     Dosage: 200 MILLIGRAMINGESTED 6 G (30 TABLETS OF 200 MG)
     Route: 048
  2. LAMOTRIGINE 200MG [Suspect]
     Active Substance: LAMOTRIGINE
     Indication: PRODUCT USED FOR UNKNOWN INDICATION
     Dosage: 200 MG, 8 G  (40 TABLETS OF 200 MG)
     Route: 048
  3. LACOSAMIDE. [Suspect]
     Active Substance: LACOSAMIDE
     Indication: PRODUCT USED FOR UNKNOWN INDICATION
     Dosage: 6 MILLIGRAM
     Route: 048
  4. LAMOTRIGINE 200MG [Suspect]
     Active Substance: LAMOTRIGINE
     Dosage: 8 MILLIGRAM (40 TABLETS OF 200 MG)
     Route: 048

REACTIONS (7)
  - Coma [Recovered/Resolved]
  - Agitation [Recovered/Resolved]
  - Intentional overdose [Recovered/Resolved]
  - Blood creatine phosphokinase increased [Unknown]
  - Toxicity to various agents [Recovered/Resolved]
  - Generalised tonic-clonic seizure [Unknown]
  - Status epilepticus [Recovered/Resolved]
